FAERS Safety Report 5535132-8 (Version None)
Quarter: 2007Q4

REPORT INFORMATION
  Report Type: 
  Country: None (occurrence: None)
  Receive Date: 20071203
  Receipt Date: 20071119
  Transmission Date: 20080405
  Serious: Yes (Other)
  Sender: FDA-Public Use
  Company Number: 100#01#2007-04920

PATIENT
  Sex: Female

DRUGS (2)
  1. CARBOPLATIN [Suspect]
     Indication: ACCIDENTAL EXPOSURE
     Dosage: (CONCENTRATION:  595MG IN 58.5ML/ONCE
     Dates: start: 20071019, end: 20071019
  2. VIAFLEX                             (5 PER CENT) (GLUCOSE) [Suspect]
     Indication: ACCIDENTAL EXPOSURE
     Dates: start: 20071019, end: 20071019

REACTIONS (3)
  - ACCIDENTAL EXPOSURE [None]
  - PHARMACEUTICAL PRODUCT COMPLAINT [None]
  - SCAR [None]
